FAERS Safety Report 18559779 (Version 5)
Quarter: 2021Q3

REPORT INFORMATION
  Report Type: Report from Study
  Country: US (occurrence: US)
  Receive Date: 20201130
  Receipt Date: 20210820
  Transmission Date: 20211014
  Serious: Yes (Hospitalization)
  Sender: FDA-Public Use
  Company Number: US-JAZZ-2020-US-015410

PATIENT
  Age: 56 Year
  Sex: Female

DRUGS (60)
  1. BUPROPION HCL [Concomitant]
     Active Substance: BUPROPION HYDROCHLORIDE
  2. TRAZODONE [Concomitant]
     Active Substance: TRAZODONE HYDROCHLORIDE
  3. PROAIR HFA [Concomitant]
     Active Substance: ALBUTEROL SULFATE
  4. VITAMIN B COMPLEX [Concomitant]
     Active Substance: CYANOCOBALAMIN\DEXPANTHENOL\NIACINAMIDE\PYRIDOXINE HYDROCHLORIDE\RIBOFLAVIN 5^-PHOSPHATE SODIUM\THIAMINE HYDROCHLORIDE\VITAMIN B COMPLEX
  5. HYDROCORTISONE. [Concomitant]
     Active Substance: HYDROCORTISONE
  6. MYRBETRIQ [Concomitant]
     Active Substance: MIRABEGRON
  7. OXYCODONE AND ACETAMINOPHEN [Concomitant]
     Active Substance: ACETAMINOPHEN\OXYCODONE HYDROCHLORIDE
  8. OXYGEN. [Concomitant]
     Active Substance: OXYGEN
  9. PROZAC [Concomitant]
     Active Substance: FLUOXETINE HYDROCHLORIDE
  10. WAKIX [Concomitant]
     Active Substance: PITOLISANT HYDROCHLORIDE
  11. ZOFRAN [Concomitant]
     Active Substance: ONDANSETRON HYDROCHLORIDE
  12. CYMBALTA [Concomitant]
     Active Substance: DULOXETINE HYDROCHLORIDE
  13. METOPROLOL TARTRATE. [Concomitant]
     Active Substance: METOPROLOL TARTRATE
  14. FENOFIBRIC ACID. [Concomitant]
     Active Substance: FENOFIBRIC ACID
  15. WARFARIN SODIUM. [Concomitant]
     Active Substance: WARFARIN SODIUM
  16. ABILIFY [Concomitant]
     Active Substance: ARIPIPRAZOLE
  17. FLUVOXAMINE MALEATE. [Concomitant]
     Active Substance: FLUVOXAMINE MALEATE
  18. LABETALOL HCL [Concomitant]
     Active Substance: LABETALOL HYDROCHLORIDE
  19. OMEPRAZOLE. [Concomitant]
     Active Substance: OMEPRAZOLE
  20. SYNTHROID [Concomitant]
     Active Substance: LEVOTHYROXINE SODIUM
  21. VITAMIN D2 [Concomitant]
     Active Substance: ERGOCALCIFEROL
  22. POTASSIUM CHLORIDE. [Concomitant]
     Active Substance: POTASSIUM CHLORIDE
  23. COMBIVENT RESPIMAT [Concomitant]
     Active Substance: ALBUTEROL SULFATE\IPRATROPIUM BROMIDE
  24. ATORVASTATIN [Concomitant]
     Active Substance: ATORVASTATIN
  25. FLONASE ALLERGY RELIEF [Concomitant]
     Active Substance: FLUTICASONE PROPIONATE
  26. GABAPENTIN. [Concomitant]
     Active Substance: GABAPENTIN
  27. IMITREX [Concomitant]
     Active Substance: SUMATRIPTAN SUCCINATE
  28. LITHIUM CARBONATE. [Concomitant]
     Active Substance: LITHIUM CARBONATE
  29. MYDAYIS [Concomitant]
     Active Substance: AMPHETAMINE ASPARTATE\AMPHETAMINE SULFATE\DEXTROAMPHETAMINE SACCHARATE\DEXTROAMPHETAMINE SULFATE
  30. SUNOSI [Concomitant]
     Active Substance: SOLRIAMFETOL
  31. TORSEMIDE. [Concomitant]
     Active Substance: TORSEMIDE
  32. ZOLOFT [Concomitant]
     Active Substance: SERTRALINE HYDROCHLORIDE
  33. XYREM [Suspect]
     Active Substance: SODIUM OXYBATE
     Dosage: DOSE ADJUSTMENT
     Route: 048
     Dates: start: 201706, end: 202004
  34. OXYBUTYNIN. [Concomitant]
     Active Substance: OXYBUTYNIN CHLORIDE
  35. AUSTEDO [Concomitant]
     Active Substance: DEUTETRABENAZINE
  36. REXULTI [Concomitant]
     Active Substance: BREXPIPRAZOLE
  37. XYREM [Suspect]
     Active Substance: SODIUM OXYBATE
     Indication: NARCOLEPSY
     Dosage: 2.25 GRAM, BID
     Route: 048
     Dates: start: 201705, end: 201706
  38. FUROSEMIDE. [Concomitant]
     Active Substance: FUROSEMIDE
  39. INCRUSE ELLIPTA [Concomitant]
     Active Substance: UMECLIDINIUM BROMIDE
  40. PROAIR RESPICLICK [Concomitant]
     Active Substance: ALBUTEROL SULFATE
  41. STOOL SOFTENER (DOCUSATE) [Concomitant]
     Active Substance: DOCUSATE
  42. VALIUM [Concomitant]
     Active Substance: DIAZEPAM
  43. VRAYLAR [Concomitant]
     Active Substance: CARIPRAZINE
  44. XYREM [Suspect]
     Active Substance: SODIUM OXYBATE
     Dosage: 8 GRAMS DAILY
     Route: 048
     Dates: start: 20200714
  45. ALENDRONATE SODIUM. [Concomitant]
     Active Substance: ALENDRONATE SODIUM
  46. ADDERALL [Concomitant]
     Active Substance: AMPHETAMINE ASPARTATE\AMPHETAMINE SULFATE\DEXTROAMPHETAMINE SACCHARATE\DEXTROAMPHETAMINE SULFATE
  47. KETAMINE [Concomitant]
     Active Substance: KETAMINE
  48. LOMOTIL [LOPERAMIDE HYDROCHLORIDE] [Concomitant]
     Active Substance: LOPERAMIDE HYDROCHLORIDE
  49. PITOLISANT [Concomitant]
     Active Substance: PITOLISANT
  50. REMERON [Concomitant]
     Active Substance: MIRTAZAPINE
  51. AMITRIPTYLINE HCL [Concomitant]
     Active Substance: AMITRIPTYLINE
  52. CETIRIZINE HCL [Concomitant]
     Active Substance: CETIRIZINE HYDROCHLORIDE
  53. VITAMIN C [Concomitant]
     Active Substance: ASCORBIC ACID
  54. WELLBUTRIN [Concomitant]
     Active Substance: BUPROPION HYDROCHLORIDE
  55. XYREM [Suspect]
     Active Substance: SODIUM OXYBATE
     Dosage: 4.5 GRAM, BID
     Route: 048
     Dates: start: 202004
  56. SINGULAIR [Concomitant]
     Active Substance: MONTELUKAST SODIUM
  57. XANAX [Concomitant]
     Active Substance: ALPRAZOLAM
  58. CALCIUM [Concomitant]
     Active Substance: CALCIUM
  59. NUEDEXTA [Concomitant]
     Active Substance: DEXTROMETHORPHAN HYDROBROMIDE\QUINIDINE SULFATE
  60. NYSTATIN. [Concomitant]
     Active Substance: NYSTATIN

REACTIONS (2)
  - Hyponatraemia [Unknown]
  - Fall [Recovered/Resolved]

NARRATIVE: CASE EVENT DATE: 202011
